FAERS Safety Report 19209903 (Version 1)
Quarter: 2021Q2

REPORT INFORMATION
  Report Type: Spontaneous
  Country: US (occurrence: US)
  Receive Date: 20210504
  Receipt Date: 20210504
  Transmission Date: 20210717
  Serious: No
  Sender: FDA-Public Use
  Company Number: US-BIOGEN-2021BI01007102

PATIENT
  Sex: Female

DRUGS (8)
  1. MAXALT [Concomitant]
     Active Substance: RIZATRIPTAN BENZOATE
     Route: 065
  2. TOPAMAX [Concomitant]
     Active Substance: TOPIRAMATE
     Route: 065
  3. DULOXETINE HCL [Concomitant]
     Active Substance: DULOXETINE HYDROCHLORIDE
     Route: 065
  4. BACLOFEN. [Concomitant]
     Active Substance: BACLOFEN
     Route: 065
  5. OXCARBAZEPINE. [Concomitant]
     Active Substance: OXCARBAZEPINE
     Route: 065
  6. MECLIZINE HCL [Concomitant]
     Active Substance: MECLIZINE HYDROCHLORIDE
     Route: 065
  7. CLONAZEPAM. [Concomitant]
     Active Substance: CLONAZEPAM
     Route: 065
  8. TECFIDERA [Suspect]
     Active Substance: DIMETHYL FUMARATE
     Indication: MULTIPLE SCLEROSIS
     Dosage: TAKE 1 CAPSULE (240 MG) BY MOUTH TWICE A DAY
     Route: 048

REACTIONS (1)
  - COVID-19 [Recovered/Resolved]
